FAERS Safety Report 7259392-0 (Version None)
Quarter: 2011Q1

REPORT INFORMATION
  Report Type: 
  Country: None (occurrence: None)
  Receive Date: 20110129
  Receipt Date: 20100825
  Transmission Date: 20110831
  Serious: No
  Sender: FDA-Public Use
  Company Number: US-ABBOTT-10P-163-0666261-00

PATIENT
  Age: 27 Year
  Sex: Female

DRUGS (4)
  1. IMURAN [Concomitant]
     Indication: PRODUCT USED FOR UNKNOWN INDICATION
  2. BIRTH CONTROL PILLS [Concomitant]
     Indication: PRODUCT USED FOR UNKNOWN INDICATION
  3. HUMIRA [Suspect]
     Indication: CROHN'S DISEASE
     Dosage: RECEIVED 4 PEN INJECTIONS
     Dates: start: 20100814
  4. ENTOCORT EC [Concomitant]
     Indication: CROHN'S DISEASE

REACTIONS (1)
  - INJECTION SITE RASH [None]
